FAERS Safety Report 24290401 (Version 4)
Quarter: 2024Q4

REPORT INFORMATION
  Report Type: Spontaneous
  Country: US (occurrence: US)
  Receive Date: 20240906
  Receipt Date: 20241011
  Transmission Date: 20250115
  Serious: No
  Sender: SANOFI AVENTIS
  Company Number: US-SANOFI-02198944

PATIENT
  Age: 63 Year
  Sex: Male

DRUGS (1)
  1. APIDRA [Suspect]
     Active Substance: INSULIN GLULISINE
     Indication: Type 1 diabetes mellitus
     Dosage: 5 UNK, Q4H
     Route: 050

REACTIONS (4)
  - Blood glucose increased [Recovered/Resolved]
  - Drug ineffective [Recovered/Resolved]
  - Inappropriate schedule of product administration [Unknown]
  - Incorrect route of product administration [Unknown]

NARRATIVE: CASE EVENT DATE: 20240701
